FAERS Safety Report 9410617 (Version 1)
Quarter: 2013Q2

REPORT INFORMATION
  Report Type: Spontaneous
  Country: US (occurrence: None)
  Receive Date: 20130605
  Receipt Date: 20130605
  Transmission Date: 20140414
  Serious: Yes (Hospitalization)
  Sender: FDA-Public Use
  Company Number: CABO-13002763

PATIENT
  Age: 55 Year
  Sex: Male

DRUGS (16)
  1. COMETRIQ (CABOZANTINIB) CAPSULE [Suspect]
     Indication: THYROID CANCER
     Route: 048
     Dates: start: 20130513, end: 20130517
  2. ZOFRAN (ONDANSETRON HYDROCHLORIDE) [Concomitant]
  3. ZINC (ARACHIS HYPOGAEA OIL, OLEIC ACID, WOOL FAT, ZINC OXIDE) [Concomitant]
  4. WARFARIN (WARFARIN SODIUM) [Concomitant]
  5. VITAMIN D3 (COLECALCIFEROL) [Concomitant]
  6. MORPHINE (MORPHINE HYDROCHLORIDE) [Concomitant]
  7. MELATONIN (MELATONIN) [Concomitant]
  8. MEDI-HONEY [Concomitant]
  9. LEVOTHROID (LEVOTHYROXINE SODIUM) [Concomitant]
  10. L-GLUTAMINE (LEVOGLUTAMIDE) [Concomitant]
  11. GABAPENTIN (GABAPENTIN) [Concomitant]
  12. B-COMPLEX (VITAMIN B NOS) [Concomitant]
  13. ATIVAN (LORAZEPAM) [Concomitant]
  14. AMBIEN (ZOLPIDEM TARTRATE) [Concomitant]
  15. ALBUTEROL (SALBUTAMOL SULFATE) [Concomitant]
  16. LIDODERM (LIDOCAINE) [Concomitant]

REACTIONS (6)
  - Blister [None]
  - Skin discolouration [None]
  - Dry mouth [None]
  - Arthralgia [None]
  - Nausea [None]
  - Surgery [None]
